FAERS Safety Report 10361100 (Version 1)
Quarter: 2014Q3

REPORT INFORMATION
  Report Type: Spontaneous
  Country: AU (occurrence: None)
  Receive Date: 20140731
  Receipt Date: 20140731
  Transmission Date: 20150326
  Serious: Yes (Hospitalization)
  Sender: FDA-Public Use
  Company Number: 2014HINLIT0676

PATIENT
  Age: 68 Year
  Sex: Female

DRUGS (8)
  1. GLICLAZIDE MR [Concomitant]
     Active Substance: GLICLAZIDE
  2. AMLODIPINE [Concomitant]
     Active Substance: AMLODIPINE BESYLATE
  3. ISOPHANE INSULIN [Concomitant]
     Active Substance: INSULIN NOS
  4. METFORMIN [Suspect]
     Active Substance: METFORMIN HYDROCHLORIDE
     Indication: TYPE 2 DIABETES MELLITUS
  5. SODIUM PICOSULPHATE [Concomitant]
  6. INDAPAMIDE. [Suspect]
     Active Substance: INDAPAMIDE
     Indication: HYPERTENSION
  7. IRBESARTAN. [Suspect]
     Active Substance: IRBESARTAN
     Indication: HYPERTENSION
  8. MELOXICAM. [Concomitant]
     Active Substance: MELOXICAM

REACTIONS (6)
  - Continuous haemodiafiltration [None]
  - Renal failure acute [None]
  - Blood pressure decreased [None]
  - Drug interaction [None]
  - Lactic acidosis [None]
  - Metabolic acidosis [None]
